FAERS Safety Report 4673353-7 (Version None)
Quarter: 2005Q2

REPORT INFORMATION
  Report Type: 
  Country: None (occurrence: None)
  Receive Date: 20050523
  Receipt Date: 20050425
  Transmission Date: 20051028
  Serious: No
  Sender: FDA-Public Use
  Company Number: MED000114

PATIENT
  Age: 61 Year
  Sex: Male

DRUGS (4)
  1. LACTATED RINGER'S [Suspect]
     Indication: EYE IRRIGATION
     Dosage: INTRAOCULAR
     Route: 031
     Dates: start: 20050118, end: 20050118
  2. CARBACHOL [Suspect]
     Dosage: 2 ML
  3. TRIPAN BLUE [Concomitant]
  4. METYLCELLULOSE [Concomitant]

REACTIONS (3)
  - CATARACT OPERATION [None]
  - EYE INFLAMMATION [None]
  - POST PROCEDURAL COMPLICATION [None]
